FAERS Safety Report 7471154-8 (Version None)
Quarter: 2011Q2

REPORT INFORMATION
  Report Type: 
  Country: None (occurrence: None)
  Receive Date: 20110510
  Receipt Date: 20110427
  Transmission Date: 20111010
  Serious: Yes (Hospitalization, Other)
  Sender: FDA-Public Use
  Company Number: US-TYCO HEALTHCARE/MALLINCKRODT-T201100867

PATIENT

DRUGS (2)
  1. FENTANYL-100 [Suspect]
  2. ACETAMINOPHEN AND HYDROCODONE BITARTRATE [Suspect]
     Dosage: TWO TABLETS

REACTIONS (5)
  - CONVULSION [None]
  - TROPONIN INCREASED [None]
  - WRONG TECHNIQUE IN DRUG USAGE PROCESS [None]
  - HYPOTENSION [None]
  - DRUG ABUSE [None]
